FAERS Safety Report 6172162-X (Version None)
Quarter: 2009Q2

REPORT INFORMATION
  Report Type: 
  Country: None (occurrence: None)
  Receive Date: 20090429
  Receipt Date: 20080808
  Transmission Date: 20091009
  Serious: No
  Sender: FDA-Public Use
  Company Number: A0742691A

PATIENT

DRUGS (1)
  1. ONDANSETRON [Suspect]
     Route: 065
     Dates: start: 20071201

REACTIONS (1)
  - DRUG INEFFECTIVE [None]
